FAERS Safety Report 18617738 (Version 1)
Quarter: 2020Q4

REPORT INFORMATION
  Report Type: Spontaneous
  Country: BR (occurrence: BR)
  Receive Date: 20201215
  Receipt Date: 20201215
  Transmission Date: 20210114
  Serious: Yes (Hospitalization, Other)
  Sender: FDA-Public Use
  Company Number: BR-BAYER-2020-274692

PATIENT
  Age: 30 Year
  Sex: Female

DRUGS (2)
  1. AMITRIPTILINA [AMITRIPTYLINE HYDROCHLORIDE] [Concomitant]
     Active Substance: AMITRIPTYLINE HYDROCHLORIDE
     Indication: ENDOMETRIOSIS
     Dates: start: 202012
  2. MIRENA [Suspect]
     Active Substance: LEVONORGESTREL
     Dosage: MIRENA 20 ?G PER DAY, CONTINUOUSLY
     Route: 015
     Dates: start: 202002, end: 202012

REACTIONS (3)
  - Device breakage [Unknown]
  - Medical device discomfort [Recovering/Resolving]
  - Abdominal pain [Recovering/Resolving]

NARRATIVE: CASE EVENT DATE: 202003
